FAERS Safety Report 20069958 (Version 1)
Quarter: 2021Q4

REPORT INFORMATION
  Report Type: Spontaneous
  Country: DE (occurrence: DE)
  Receive Date: 20211115
  Receipt Date: 20211115
  Transmission Date: 20220303
  Serious: Yes (Death, Hospitalization)
  Sender: FDA-Public Use
  Company Number: DE-002147023-NVSC2021DE186462

PATIENT
  Sex: Male

DRUGS (6)
  1. FUROSEMIDE [Suspect]
     Active Substance: FUROSEMIDE
     Indication: Product used for unknown indication
     Dosage: 4 MILLIGRAM/KILOGRAM, QD, 4 MG/KG, QD
     Route: 065
  2. PROPRANOLOL [Suspect]
     Active Substance: PROPRANOLOL HYDROCHLORIDE
     Indication: Product used for unknown indication
     Dosage: 5 MILLIGRAM/KILOGRAM, QD,(3 TO 5 MG/KG/DAY
     Route: 065
  3. TRAMETINIB [Suspect]
     Active Substance: TRAMETINIB
     Indication: Left ventricular hypertrophy
     Dosage: UNK
     Route: 065
  4. TRAMETINIB [Suspect]
     Active Substance: TRAMETINIB
     Indication: Left ventricle outflow tract obstruction
  5. TRAMETINIB [Suspect]
     Active Substance: TRAMETINIB
     Indication: Cardiomyopathy
  6. TRAMETINIB [Suspect]
     Active Substance: TRAMETINIB
     Indication: Cardiac failure

REACTIONS (13)
  - Myocardial ischaemia [Fatal]
  - Coronary artery stenosis [Fatal]
  - Coronary artery occlusion [Fatal]
  - Cardiac perfusion defect [Fatal]
  - Syncope [Unknown]
  - Cardiac arrest [Unknown]
  - Bradycardia [Unknown]
  - Electrocardiogram ST segment elevation [Unknown]
  - Respiratory distress [Unknown]
  - Rash [Recovering/Resolving]
  - Epistaxis [Recovering/Resolving]
  - Product use in unapproved indication [Unknown]
  - Dry skin [Recovering/Resolving]
